FAERS Safety Report 7355510-4 (Version None)
Quarter: 2011Q1

REPORT INFORMATION
  Report Type: 
  Country: None (occurrence: None)
  Receive Date: 20110316
  Receipt Date: 20110309
  Transmission Date: 20110831
  Serious: Yes (Hospitalization, Other)
  Sender: FDA-Public Use
  Company Number: A0917372A

PATIENT
  Age: 67 Year
  Sex: Female

DRUGS (8)
  1. LITHIUM [Suspect]
     Indication: PRODUCT USED FOR UNKNOWN INDICATION
     Route: 065
  2. ASPIRIN [Concomitant]
  3. SYNTHROID [Concomitant]
  4. SEROQUEL [Concomitant]
  5. MIDODRINE HYDROCHLORIDE [Concomitant]
  6. LAMICTAL [Suspect]
     Indication: BIPOLAR DISORDER
     Dosage: 100MG PER DAY
     Route: 048
  7. VITAMIN D [Concomitant]
  8. METOPROLOL SUCCINATE [Concomitant]

REACTIONS (3)
  - RENAL IMPAIRMENT [None]
  - BLOOD CREATININE INCREASED [None]
  - ADVERSE EVENT [None]
